FAERS Safety Report 18570272 (Version 1)
Quarter: 2020Q4

REPORT INFORMATION
  Report Type: Spontaneous
  Country: FR (occurrence: FR)
  Receive Date: 20201202
  Receipt Date: 20201202
  Transmission Date: 20210114
  Serious: Yes (Hospitalization)
  Sender: FDA-Public Use
  Company Number: FR-TEVA-2020-FR-1854049

PATIENT
  Age: 18 Year
  Sex: Female
  Weight: 67 kg

DRUGS (6)
  1. DULOXETINE (CHLORHYDRATE DE) [Suspect]
     Active Substance: DULOXETINE
     Indication: SUICIDE ATTEMPT
     Dosage: 840MILLIGRAM
     Route: 048
     Dates: start: 20200710, end: 20200710
  2. COVERSYL 5 MG, COMPRIME PELLICULE SECABLE [Concomitant]
     Active Substance: PERINDOPRIL ARGININE
  3. LAMICTAL [Suspect]
     Active Substance: LAMOTRIGINE
     Indication: SUICIDE ATTEMPT
     Dosage: 1000MILLIGRAM
     Route: 048
     Dates: start: 20200710, end: 20200710
  4. PARACETAMOL [Suspect]
     Active Substance: ACETAMINOPHEN
     Indication: SUICIDE ATTEMPT
     Dosage: 48GRAM
     Route: 048
     Dates: start: 20200710, end: 20200710
  5. FUROSEMIDE. [Suspect]
     Active Substance: FUROSEMIDE
     Route: 065
  6. ALDACTONE [Concomitant]
     Active Substance: SPIRONOLACTONE

REACTIONS (3)
  - Tachycardia [Recovered/Resolved]
  - Drug level increased [Recovered/Resolved]
  - Toxicity to various agents [Recovered/Resolved]

NARRATIVE: CASE EVENT DATE: 20200710
